FAERS Safety Report 12253457 (Version 4)
Quarter: 2016Q4

REPORT INFORMATION
  Report Type: Spontaneous
  Country: FR (occurrence: FR)
  Receive Date: 20160411
  Receipt Date: 20161222
  Transmission Date: 20170207
  Serious: Yes (Hospitalization, Other)
  Sender: FDA-Public Use
  Company Number: FR-BRISTOL-MYERS SQUIBB COMPANY-BMS-2016-025113

PATIENT
  Sex: Female
  Weight: 58 kg

DRUGS (5)
  1. ULTRA LEVURE [Concomitant]
     Active Substance: SACCHAROMYCES CEREVISIAE
     Indication: PRODUCT USED FOR UNKNOWN INDICATION
     Route: 065
  2. ORENCIA [Suspect]
     Active Substance: ABATACEPT
     Indication: RHEUMATOID ARTHRITIS
     Dosage: UNK UNK, Q3WK
     Route: 042
     Dates: start: 201503
  3. BAUME AROMA [Concomitant]
     Indication: PRODUCT USED FOR UNKNOWN INDICATION
     Route: 065
  4. DOLIPRANE [Concomitant]
     Active Substance: ACETAMINOPHEN
     Indication: PRODUCT USED FOR UNKNOWN INDICATION
     Dosage: 1 G, PRN
     Route: 065
  5. ROACTEMRA [Concomitant]
     Active Substance: TOCILIZUMAB
     Indication: PRODUCT USED FOR UNKNOWN INDICATION
     Dosage: UNK
     Route: 065
     Dates: start: 20151113

REACTIONS (11)
  - Renal disorder [Unknown]
  - Pyelonephritis [Unknown]
  - Haematuria [Unknown]
  - Off label use [Unknown]
  - Lithotripsy [Unknown]
  - Drug ineffective [Unknown]
  - Dyspnoea [Unknown]
  - Nephrolithiasis [Recovering/Resolving]
  - Catheter placement [Unknown]
  - Constipation [Unknown]
  - Abdominal pain [Unknown]
